FAERS Safety Report 4436413-1 (Version None)
Quarter: 2004Q3

REPORT INFORMATION
  Report Type: 
  Country: None (occurrence: None)
  Receive Date: 20040830
  Receipt Date: 20040506
  Transmission Date: 20050211
  Serious: No
  Sender: FDA-Public Use
  Company Number: US-BRISTOL-MYERS SQUIBB COMPANY-12581906

PATIENT
  Age: 16 Year
  Sex: Female

DRUGS (1)
  1. ABILIFY [Suspect]
     Indication: SELF MUTILATION
     Dosage: STARTED 5 MG, FEB-2004 ONE MONTH LATER INCREASED TO 10 MG DAILY; THEN D/C
     Route: 048
     Dates: start: 20040201

REACTIONS (1)
  - HYPOTHYROIDISM [None]
